FAERS Safety Report 23132699 (Version 5)
Quarter: 2025Q2

REPORT INFORMATION
  Report Type: Spontaneous
  Country: JP (occurrence: JP)
  Receive Date: 20231101
  Receipt Date: 20250626
  Transmission Date: 20250716
  Serious: Yes (Life-Threatening, Hospitalization, Other)
  Sender: ESTEVE
  Company Number: JP-ORG100014127-2023001039

PATIENT
  Age: 81 Year
  Sex: Female

DRUGS (29)
  1. METOPIRONE [Suspect]
     Active Substance: METYRAPONE
     Indication: Pituitary-dependent Cushing^s syndrome
     Dates: start: 20221227
  2. METOPIRONE [Suspect]
     Active Substance: METYRAPONE
     Dates: end: 20230501
  3. METOPIRONE [Suspect]
     Active Substance: METYRAPONE
     Dates: start: 20230105, end: 20230110
  4. METOPIRONE [Suspect]
     Active Substance: METYRAPONE
     Dates: start: 20230104
  5. METOPIRONE [Suspect]
     Active Substance: METYRAPONE
     Dates: start: 20230103
  6. METOPIRONE [Suspect]
     Active Substance: METYRAPONE
     Dates: start: 20230101, end: 20230102
  7. METOPIRONE [Suspect]
     Active Substance: METYRAPONE
     Dates: start: 20221231
  8. METOPIRONE [Suspect]
     Active Substance: METYRAPONE
     Dates: start: 20221230
  9. METOPIRONE [Suspect]
     Active Substance: METYRAPONE
     Dates: start: 20221229
  10. METOPIRONE [Suspect]
     Active Substance: METYRAPONE
     Dates: start: 20221226, end: 20221228
  11. METOPIRONE [Suspect]
     Active Substance: METYRAPONE
     Dates: start: 20221223, end: 20221225
  12. METOPIRONE [Suspect]
     Active Substance: METYRAPONE
     Dates: start: 20221222
  13. METOPIRONE [Suspect]
     Active Substance: METYRAPONE
     Dates: start: 20221221
  14. METOPIRONE [Suspect]
     Active Substance: METYRAPONE
     Dates: start: 20221220
  15. EDOXABAN [Concomitant]
     Active Substance: EDOXABAN
  16. DAYVIGO [Concomitant]
     Active Substance: LEMBOREXANT
  17. LEVOCETIRIZINE [Concomitant]
     Active Substance: LEVOCETIRIZINE
  18. ROSUVASTATIN [Concomitant]
     Active Substance: ROSUVASTATIN
  19. FERROMIA (Sodium ferrous citrate) [Concomitant]
  20. NICORANDIL [Concomitant]
     Active Substance: NICORANDIL
  21. CARVEDILOL [Concomitant]
     Active Substance: CARVEDILOL
  22. AMLODIPINE [Concomitant]
     Active Substance: AMLODIPINE BESYLATE
  23. DAIPHEN (Sulfamethoxazole Trimethoprim) [Concomitant]
  24. DECADRON [Concomitant]
     Active Substance: DEXAMETHASONE
  25. HIDROCORTONE (Hydrocortisone sodium phosphate) [Concomitant]
  26. SULFAMETHOXAZOLE AND TRIMETHOPRIM [Concomitant]
     Active Substance: SULFAMETHOXAZOLE\TRIMETHOPRIM
  27. DEXAMETHASONE [Concomitant]
     Active Substance: DEXAMETHASONE
  28. METOPIRONE [Suspect]
     Active Substance: METYRAPONE
  29. METOPIRONE [Suspect]
     Active Substance: METYRAPONE

REACTIONS (1)
  - Pneumocystis jirovecii pneumonia [Recovered/Resolved]

NARRATIVE: CASE EVENT DATE: 20220101
